FAERS Safety Report 20865692 (Version 1)
Quarter: 2022Q2

REPORT INFORMATION
  Report Type: Spontaneous
  Country: US (occurrence: None)
  Receive Date: 20220523
  Receipt Date: 20220523
  Transmission Date: 20220720
  Serious: Yes (Hospitalization)
  Sender: FDA-Public Use
  Company Number: None

PATIENT
  Age: 62 Year
  Sex: Male
  Weight: 104 kg

DRUGS (1)
  1. HYDROCHLOROTHIAZIDE [Suspect]
     Active Substance: HYDROCHLOROTHIAZIDE
     Indication: Hypertension
     Dates: start: 20200221, end: 20200803

REACTIONS (5)
  - Pancreatitis acute [None]
  - Abdominal pain [None]
  - Abdominal pain upper [None]
  - Decreased appetite [None]
  - Nausea [None]

NARRATIVE: CASE EVENT DATE: 20200403
